FAERS Safety Report 7571013-6 (Version None)
Quarter: 2011Q2

REPORT INFORMATION
  Report Type: 
  Country: None (occurrence: None)
  Receive Date: 20110624
  Receipt Date: 20110617
  Transmission Date: 20111010
  Serious: Yes (Other)
  Sender: FDA-Public Use
  Company Number: DE-ROCHE-781626

PATIENT
  Sex: Female
  Weight: 64 kg

DRUGS (5)
  1. DEKRISTOL [Concomitant]
     Indication: OSTEOPOROSIS
     Route: 048
  2. BONIVA [Suspect]
     Indication: OSTEOPOROSIS
     Route: 042
     Dates: start: 20090813, end: 20101216
  3. DIGITOXIN TAB [Concomitant]
     Dosage: FREQUENCY 1-0-0
     Route: 048
  4. RAMIPRIL [Concomitant]
     Dosage: FREQUENCY 1-0-0
     Route: 048
  5. MARCUMAR [Concomitant]
     Dosage: ACCORDING TO INR
     Route: 048

REACTIONS (1)
  - SYSTEMIC LUPUS ERYTHEMATOSUS [None]
